FAERS Safety Report 8423982-X (Version None)
Quarter: 2012Q2

REPORT INFORMATION
  Report Type: 
  Country: None (occurrence: None)
  Receive Date: 20120608
  Receipt Date: 20120605
  Transmission Date: 20120825
  Serious: Yes (Hospitalization)
  Sender: FDA-Public Use
  Company Number: US-AMGEN-USASP2012019420

PATIENT
  Age: 76 Year
  Sex: Female

DRUGS (11)
  1. ASPIRIN [Concomitant]
     Dosage: UNK
  2. AMLODIPINE [Concomitant]
  3. BYSTOLIC [Concomitant]
  4. LISINOPRIL [Concomitant]
  5. PROTONIX [Concomitant]
  6. PLAQUENIL [Concomitant]
  7. PROLIA [Suspect]
     Dosage: UNK, ONE TIME DOSE
     Dates: start: 20120117
  8. PROLIA [Suspect]
     Indication: OSTEOPOROSIS POSTMENOPAUSAL
     Dosage: 60 MG, Q6MO
     Dates: start: 20120117
  9. CALCIUM PLUS VITAMIN D [Concomitant]
  10. GLUCOSAMINE AND CHONDROITIN [Concomitant]
  11. ZOCOR [Concomitant]
     Dates: end: 20120301

REACTIONS (7)
  - RASH ERYTHEMATOUS [None]
  - RASH [None]
  - SKIN DISCOLOURATION [None]
  - DERMATITIS CONTACT [None]
  - PRURITUS [None]
  - ECZEMA [None]
  - URTICARIA [None]
